FAERS Safety Report 7127890-6 (Version None)
Quarter: 2010Q4

REPORT INFORMATION
  Report Type: 
  Country: None (occurrence: None)
  Receive Date: 20101029
  Receipt Date: 20100902
  Transmission Date: 20110411
  Serious: No
  Sender: FDA-Public Use
  Company Number: GB-003586

PATIENT
  Sex: Male

DRUGS (2)
  1. FIRMAGON [Suspect]
     Indication: PRODUCT USED FOR UNKNOWN INDICATION
     Dosage: (240 MG  1X SUBCUTANEOUS), (80 MG 1X/MONTH SUBCUTANEOUS)
     Route: 058
     Dates: start: 20100323, end: 20100323
  2. FIRMAGON [Suspect]
     Indication: PRODUCT USED FOR UNKNOWN INDICATION
     Dosage: (240 MG  1X SUBCUTANEOUS), (80 MG 1X/MONTH SUBCUTANEOUS)
     Route: 058
     Dates: end: 20100828

REACTIONS (2)
  - DECREASED APPETITE [None]
  - MOOD ALTERED [None]
